FAERS Safety Report 7135233-7 (Version None)
Quarter: 2010Q4

REPORT INFORMATION
  Report Type: 
  Country: None (occurrence: None)
  Receive Date: 20101203
  Receipt Date: 20101123
  Transmission Date: 20110411
  Serious: Yes (Death, Hospitalization)
  Sender: FDA-Public Use
  Company Number: A0698894A

PATIENT
  Age: 38 Year
  Sex: Male
  Weight: 136.4 kg

DRUGS (2)
  1. AVANDIA [Suspect]
     Route: 048
     Dates: start: 20010815, end: 20051101
  2. AVANDAMET [Suspect]
     Route: 048
     Dates: start: 20040716, end: 20060222

REACTIONS (4)
  - CARDIAC FAILURE CONGESTIVE [None]
  - CARDIO-RESPIRATORY ARREST [None]
  - CARDIOMYOPATHY [None]
  - MYOCARDIAL INFARCTION [None]
